FAERS Safety Report 4612632-6 (Version None)
Quarter: 2005Q1

REPORT INFORMATION
  Report Type: 
  Country: None (occurrence: None)
  Receive Date: 20050316
  Receipt Date: 20050304
  Transmission Date: 20050727
  Serious: Yes (Hospitalization)
  Sender: FDA-Public Use
  Company Number: 212873

PATIENT
  Age: 59 Year
  Sex: Male
  Weight: 93 kg

DRUGS (2)
  1. AVASTIN [Suspect]
     Indication: COLORECTAL CANCER METASTATIC
     Dosage: 5 MG/KG, Q2W, INTRAVENOUS
     Route: 042
     Dates: start: 20040713
  2. VANCOMYCIN HYDROCHLORIDE [Concomitant]

REACTIONS (4)
  - CENTRAL LINE INFECTION [None]
  - ERYTHEMA INDURATUM [None]
  - HAEMATOCRIT DECREASED [None]
  - WOUND SECRETION [None]
